FAERS Safety Report 15335918 (Version 1)
Quarter: 2018Q3

REPORT INFORMATION
  Report Type: Spontaneous
  Country: US (occurrence: US)
  Receive Date: 20180830
  Receipt Date: 20180830
  Transmission Date: 20181010
  Serious: Yes (Other)
  Sender: FDA-Public Use
  Company Number: PHHY2018US079371

PATIENT
  Age: 64 Year
  Sex: Male

DRUGS (1)
  1. DEFERASIROX [Suspect]
     Active Substance: DEFERASIROX
     Indication: THALASSAEMIA BETA
     Dosage: UNK
     Route: 065

REACTIONS (5)
  - Retinopathy [Unknown]
  - Visual acuity reduced [Unknown]
  - Choroidal sclerosis [Unknown]
  - Night blindness [Unknown]
  - Retinal depigmentation [Unknown]
